FAERS Safety Report 18067011 (Version 1)
Quarter: 2020Q3

REPORT INFORMATION
  Report Type: Spontaneous
  Country: CA (occurrence: CA)
  Receive Date: 20200724
  Receipt Date: 20200724
  Transmission Date: 20201103
  Serious: Yes (Disabling)
  Sender: FDA-Public Use
  Company Number: CA-ALLERGAN-2027429US

PATIENT
  Sex: Female
  Weight: 60 kg

DRUGS (1)
  1. FOSFOMYCIN TROMETHAMINE ? BP [Suspect]
     Active Substance: FOSFOMYCIN TROMETHAMINE
     Indication: URINARY TRACT INFECTION
     Dosage: ONCE
     Route: 048

REACTIONS (7)
  - Heart rate increased [Recovered/Resolved]
  - Abdominal pain upper [Recovered/Resolved]
  - Visual impairment [Recovered/Resolved]
  - Insomnia [Recovered/Resolved]
  - Diarrhoea [Recovered/Resolved]
  - Feeling of body temperature change [Recovered/Resolved]
  - Nausea [Recovered/Resolved]
